FAERS Safety Report 7230962-9 (Version None)
Quarter: 2011Q1

REPORT INFORMATION
  Report Type: 
  Country: None (occurrence: None)
  Receive Date: 20110118
  Receipt Date: 20110110
  Transmission Date: 20110831
  Serious: Yes (Hospitalization)
  Sender: FDA-Public Use
  Company Number: GB-ROCHE-748662

PATIENT
  Sex: Male

DRUGS (11)
  1. BELATACEPT [Suspect]
     Route: 042
     Dates: start: 20020926, end: 20100913
  2. EZETIMIBE [Concomitant]
     Dates: start: 20071215
  3. PREDNISOLONE [Suspect]
     Route: 065
     Dates: start: 20020926
  4. OXITROPIUM [Concomitant]
     Dates: start: 20020926
  5. PARACETAMOL [Concomitant]
     Dates: start: 20081229
  6. FLUTICASON [Concomitant]
     Dates: start: 20020926
  7. CYCLIZINE [Concomitant]
     Dates: start: 20090101
  8. MYCOPHENOLATE MOFETIL [Suspect]
     Route: 065
     Dates: start: 20020926
  9. VALSARTAN [Concomitant]
     Dates: start: 20050705
  10. FERROUS SULFATE TAB [Concomitant]
     Dates: start: 20030703
  11. SALBUTAMOL [Concomitant]
     Dates: start: 20030428

REACTIONS (5)
  - URINARY TRACT INFECTION [None]
  - SPONDYLITIC MYELOPATHY [None]
  - UROSEPSIS [None]
  - SPINAL CORD COMPRESSION [None]
  - SALIVARY GLAND MASS [None]
